FAERS Safety Report 22157343 (Version 1)
Quarter: 2023Q1

REPORT INFORMATION
  Report Type: Spontaneous
  Country: CH (occurrence: CH)
  Receive Date: 20230330
  Receipt Date: 20230330
  Transmission Date: 20230418
  Serious: Yes (Other)
  Sender: FDA-Public Use
  Company Number: CH-CHEMOCENTRYX, INC.-2023CHCCXI0935

PATIENT

DRUGS (1)
  1. TAVNEOS [Suspect]
     Active Substance: AVACOPAN
     Indication: Product used for unknown indication
     Dosage: RECEIVED A FIRST DELIVERY OF TAVNEOS CAPSULES ON 07.FEB.2023. (MONTHLY PACKAGE OF 180 CAPSULES OF 10
     Route: 048

REACTIONS (2)
  - Deep vein thrombosis [Unknown]
  - Renal impairment [Unknown]
